FAERS Safety Report 5619107-6 (Version None)
Quarter: 2008Q1

REPORT INFORMATION
  Report Type: 
  Country: None (occurrence: None)
  Receive Date: 20080207
  Receipt Date: 20080129
  Transmission Date: 20080703
  Serious: Yes (Other)
  Sender: FDA-Public Use
  Company Number: ES-PFIZER INC-2008010285

PATIENT

DRUGS (1)
  1. VARENICLINE TABLETS [Suspect]
     Route: 048

REACTIONS (1)
  - LEUKOPENIA [None]
